FAERS Safety Report 17566857 (Version 1)
Quarter: 2020Q1

REPORT INFORMATION
  Report Type: Spontaneous
  Country: US (occurrence: US)
  Receive Date: 20200320
  Receipt Date: 20200320
  Transmission Date: 20200409
  Serious: Yes (Other)
  Sender: FDA-Public Use
  Company Number: US-ASSERTIO THERAPEUTICS, INC.-US-2020DEP000157

PATIENT
  Age: 58 Year
  Sex: Female

DRUGS (1)
  1. CAMBIA [Suspect]
     Active Substance: DICLOFENAC POTASSIUM
     Indication: MIGRAINE
     Dosage: 50 MG, UNK, MIX ONE PACKET WITH 1-2 OUNCES OF WATER, DRINK IMMEDIATELY AS A SINGLE DOSE
     Route: 048

REACTIONS (3)
  - Pain [Unknown]
  - Shoulder operation [Unknown]
  - Product use in unapproved indication [Unknown]

NARRATIVE: CASE EVENT DATE: 202003
